FAERS Safety Report 4550767-7 (Version None)
Quarter: 2004Q4

REPORT INFORMATION
  Report Type: 
  Country: None (occurrence: None)
  Receive Date: 20041217
  Receipt Date: 20040916
  Transmission Date: 20050328
  Serious: No
  Sender: FDA-Public Use
  Company Number: 2004-BP-08391BP

PATIENT
  Age: 66 Year
  Sex: Male

DRUGS (8)
  1. SPIRIVA [Suspect]
     Indication: CHRONIC OBSTRUCTIVE AIRWAYS DISEASE
     Dosage: 18 MG (18 MCG), PO
     Route: 048
     Dates: start: 20040803
  2. SPIRIVA [Suspect]
  3. ALBUTEROL [Concomitant]
  4. ADVAIR DISKUS (SERETIDE MITE) [Concomitant]
  5. PRINIVIL [Concomitant]
  6. CARDURA [Concomitant]
  7. LASIX (LASIX) [Concomitant]
  8. DIAMOX [Concomitant]

REACTIONS (2)
  - ABDOMINAL PAIN [None]
  - GROIN PAIN [None]
